FAERS Safety Report 21661494 (Version 1)
Quarter: 2022Q4

REPORT INFORMATION
  Report Type: Spontaneous
  Country: US (occurrence: None)
  Receive Date: 20221129
  Receipt Date: 20221129
  Transmission Date: 20230112
  Serious: Yes (Hospitalization)
  Sender: FDA-Public Use
  Company Number: None

PATIENT
  Age: 65 Year
  Sex: Male
  Weight: 79.38 kg

DRUGS (22)
  1. ZARXIO [Suspect]
     Active Substance: FILGRASTIM-SNDZ
     Indication: Laryngeal cancer
     Route: 058
  2. ACETAMINOPHEN [Concomitant]
  3. ALPRAZOLAM [Concomitant]
  4. CALCIUM [Concomitant]
  5. DOCUSATA SODIUM [Concomitant]
  6. DOXAZOSIN [Concomitant]
     Active Substance: DOXAZOSIN MESYLATE
  7. EPOGEN [Concomitant]
     Active Substance: ERYTHROPOIETIN
  8. FENTANYL [Concomitant]
     Active Substance: FENTANYL
  9. FIBRACOL [Concomitant]
  10. HYDROMORPHONE [Concomitant]
  11. INCRUSE [Concomitant]
  12. LEVOTHYROXINE [Concomitant]
  13. MUCOMYST [Concomitant]
  14. MULTIVITAMIN [Concomitant]
  15. PANTOPRAZOLE [Concomitant]
  16. PERIDEX MOUTH/THROAT [Concomitant]
  17. PROVENTIL [Concomitant]
  18. ROBINUL [Concomitant]
     Active Substance: GLYCOPYRROLATE
  19. LORATADINE [Concomitant]
  20. SODIUM CHLORIDE [Concomitant]
  21. TRELEGY ELLIPTA [Concomitant]
     Active Substance: FLUTICASONE FUROATE\UMECLIDINIUM BROMIDE\VILANTEROL TRIFENATATE
  22. VITAMIN C [Concomitant]

REACTIONS (1)
  - Urinary tract infection [None]
